FAERS Safety Report 14683171 (Version 1)
Quarter: 2018Q1

REPORT INFORMATION
  Report Type: Spontaneous
  Country: PL (occurrence: PL)
  Receive Date: 20180327
  Receipt Date: 20180327
  Transmission Date: 20180509
  Serious: Yes (Death, Other)
  Sender: FDA-Public Use
  Company Number: PL-AXELLIA-001480

PATIENT
  Age: 36 Year
  Sex: Male

DRUGS (6)
  1. FLUDARABINE [Concomitant]
     Active Substance: FLUDARABINE PHOSPHATE
     Indication: THERAPEUTIC PROCEDURE
     Dosage: UNK
  2. BUSULFAN. [Concomitant]
     Active Substance: BUSULFAN
     Indication: THERAPEUTIC PROCEDURE
     Dosage: UNK
  3. METHOTREXATE. [Concomitant]
     Active Substance: METHOTREXATE
     Indication: GRAFT VERSUS HOST DISEASE
     Dosage: UNK
  4. DEFIBROTIDE [Concomitant]
     Active Substance: DEFIBROTIDE (BOVINE)
     Indication: VENOOCCLUSIVE DISEASE
     Dosage: UNK
  5. VORICONAZOLE. [Suspect]
     Active Substance: VORICONAZOLE
     Indication: PULMONARY MYCOSIS
  6. CICLOSPORIN [Concomitant]
     Active Substance: CYCLOSPORINE
     Indication: GRAFT VERSUS HOST DISEASE
     Dosage: UNK

REACTIONS (7)
  - Necrosis [Unknown]
  - Emotional disorder [Unknown]
  - Eyelid oedema [Unknown]
  - Coma [Unknown]
  - Rhinorrhoea [Unknown]
  - Cerebral fungal infection [Fatal]
  - Altered state of consciousness [Unknown]
